FAERS Safety Report 25312546 (Version 1)
Quarter: 2025Q2

REPORT INFORMATION
  Report Type: Report from Study
  Country: US (occurrence: US)
  Receive Date: 20250514
  Receipt Date: 20250514
  Transmission Date: 20250716
  Serious: Yes (Other)
  Sender: MYLAN
  Company Number: US-MYLANLABS-2025M1039854

PATIENT
  Age: 58 Year
  Sex: Female

DRUGS (5)
  1. ALPRAZOLAM [Suspect]
     Active Substance: ALPRAZOLAM
     Indication: Product used for unknown indication
  2. LUMRYZ [Suspect]
     Active Substance: SODIUM OXYBATE
     Indication: Narcolepsy
     Dosage: 4.5 GRAM, PM (ONCE NIGHTLY)
     Dates: start: 20250312, end: 2025
  3. LUMRYZ [Suspect]
     Active Substance: SODIUM OXYBATE
     Dosage: 6 GRAM, PM (ONCE NIGHTLY)
     Dates: start: 2025, end: 2025
  4. LUMRYZ [Suspect]
     Active Substance: SODIUM OXYBATE
     Dosage: 4.5 GRAM, PM (ONCE NIGHTLY)
     Dates: start: 2025
  5. METOPROLOL [Concomitant]
     Active Substance: METOPROLOL

REACTIONS (5)
  - Hypertension [Unknown]
  - Poor quality sleep [Unknown]
  - Insomnia [Unknown]
  - Withdrawal syndrome [Unknown]
  - Headache [Unknown]

NARRATIVE: CASE EVENT DATE: 20250301
